FAERS Safety Report 22131896 (Version 2)
Quarter: 2024Q4

REPORT INFORMATION
  Report Type: Other
  Country: ES (occurrence: ES)
  Receive Date: 20230323
  Receipt Date: 20241226
  Transmission Date: 20250114
  Serious: Yes (Other)
  Sender: EMD SERONO INC
  Company Number: ES-FERRINGPH-2019FE03580

PATIENT
  Age: 4 Decade
  Sex: Female

DRUGS (6)
  1. CETRORELIX [Suspect]
     Active Substance: CETRORELIX
     Indication: In vitro fertilisation
  2. CETRORELIX [Suspect]
     Active Substance: CETRORELIX
     Indication: Controlled ovarian stimulation
  3. FOLLITROPIN ALFA [Suspect]
     Active Substance: FOLLITROPIN ALFA
     Indication: In vitro fertilisation
  4. FOLLITROPIN ALFA [Suspect]
     Active Substance: FOLLITROPIN ALFA
     Indication: Controlled ovarian stimulation
  5. TRIPTORELIN ACETATE [Suspect]
     Active Substance: TRIPTORELIN ACETATE
     Indication: In vitro fertilisation
  6. TRIPTORELIN ACETATE [Suspect]
     Active Substance: TRIPTORELIN ACETATE
     Indication: Controlled ovarian stimulation

REACTIONS (1)
  - Choroidal neovascularisation [Recovered/Resolved]
